APPROVED DRUG PRODUCT: COLCHICINE
Active Ingredient: COLCHICINE
Strength: 0.6MG
Dosage Form/Route: TABLET;ORAL
Application: A209876 | Product #001 | TE Code: AB
Applicant: DR REDDYS LABORATORIES LTD
Approved: Sep 6, 2019 | RLD: No | RS: No | Type: RX